FAERS Safety Report 23777941 (Version 2)
Quarter: 2024Q2

REPORT INFORMATION
  Report Type: Report from Study
  Country: CO (occurrence: CO)
  Receive Date: 20240424
  Receipt Date: 20240429
  Transmission Date: 20240716
  Serious: Yes (Death, Other)
  Sender: FDA-Public Use
  Company Number: CO-UCBSA-2024009539

PATIENT
  Age: 9 Year
  Sex: Male
  Weight: 6 kg

DRUGS (3)
  1. LACOSAMIDE [Suspect]
     Active Substance: LACOSAMIDE
     Indication: Epilepsy
     Dosage: 1 MILLILITER, 2X/DAY (BID)
     Route: 048
     Dates: start: 20240131, end: 20240206
  2. LACOSAMIDE [Suspect]
     Active Substance: LACOSAMIDE
     Dosage: 2 MILLILITER, 2X/DAY (BID)
     Route: 048
     Dates: start: 20240207, end: 20240328
  3. LEVETIRACETAM [Concomitant]
     Active Substance: LEVETIRACETAM
     Indication: Epilepsy
     Dosage: 3 MILLILITER, 3X/DAY (TID)
     Route: 048
     Dates: end: 20240328

REACTIONS (6)
  - Respiratory arrest [Fatal]
  - Malnutrition [Fatal]
  - Anxiety [Unknown]
  - Ocular hyperaemia [Unknown]
  - Lacrimation increased [Unknown]
  - Off label use [Unknown]

NARRATIVE: CASE EVENT DATE: 20240131
